FAERS Safety Report 8274761-8 (Version None)
Quarter: 2012Q2

REPORT INFORMATION
  Report Type: 
  Country: None (occurrence: None)
  Receive Date: 20120411
  Receipt Date: 20120329
  Transmission Date: 20120825
  Serious: Yes (Hospitalization)
  Sender: FDA-Public Use
  Company Number: DE-ELI_LILLY_AND_COMPANY-10-11-00161

PATIENT
  Sex: Female
  Weight: 59 kg

DRUGS (16)
  1. NEXIUM [Concomitant]
     Indication: PROPHYLAXIS
     Dates: start: 20100301
  2. PREDNISOLONE [Concomitant]
     Indication: MUSCULOSKELETAL PAIN
     Dates: start: 20080101
  3. CISPLATIN [Suspect]
     Indication: NON-SMALL CELL LUNG CANCER
     Dosage: 120 MG, UNK
     Route: 042
     Dates: start: 20100512
  4. AMITRIPTYLINE HCL [Concomitant]
     Indication: DEPRESSION
     Dates: start: 20100301
  5. ZOLPIDEM [Concomitant]
     Indication: INSOMNIA
     Dates: start: 20100503
  6. PEMETREXED [Suspect]
     Indication: NON-SMALL CELL LUNG CANCER
     Dosage: 800 MG, UNK
     Route: 042
     Dates: start: 20100512
  7. CALCIUM CARBONATE [Concomitant]
     Indication: PROPHYLAXIS
     Dates: start: 20100301
  8. DIPYRONE TAB [Concomitant]
     Indication: PAIN
     Dates: start: 20100301
  9. IBUPROFEN TABLETS [Concomitant]
     Indication: PAIN
     Dates: start: 20080101
  10. MOVIPREP [Concomitant]
     Indication: CONSTIPATION
     Dates: start: 20100504
  11. SYMBICORT [Concomitant]
     Indication: CHRONIC OBSTRUCTIVE PULMONARY DISEASE
     Dates: start: 20100503
  12. NALOXONE [Concomitant]
     Indication: PAIN
     Dates: start: 20100503
  13. MORPHINE SULFATE [Concomitant]
     Indication: PAIN
     Dates: start: 20100301
  14. ACC                                /00082801/ [Concomitant]
     Indication: CHRONIC OBSTRUCTIVE PULMONARY DISEASE
     Dosage: 600 MG, UNK
     Dates: start: 20100503
  15. LORAZEPAM [Concomitant]
     Indication: DEPRESSION
     Dates: start: 20100301
  16. SPIRIVA [Concomitant]
     Indication: CHRONIC OBSTRUCTIVE PULMONARY DISEASE
     Dates: start: 20100503

REACTIONS (3)
  - GENERAL PHYSICAL HEALTH DETERIORATION [None]
  - TACHYCARDIA [None]
  - ANGINA PECTORIS [None]
